FAERS Safety Report 8010418 (Version 9)
Quarter: 2013Q3

REPORT INFORMATION
  Report Type: Spontaneous
  Country: US (occurrence: US)
  Receive Date: 20110627
  Receipt Date: 20130917
  Transmission Date: 20140515
  Serious: Yes (Other)
  Sender: FDA-Public Use
  Company Number: US-ROCHE-784940

PATIENT
  Age: 47 Year
  Sex: Female
  Weight: 43.1 kg

DRUGS (3)
  1. ACCUTANE [Suspect]
     Indication: ACNE
     Route: 065
     Dates: start: 19990101, end: 20000321
  2. ASPIRIN [Concomitant]
  3. IBUPROFEN [Concomitant]

REACTIONS (10)
  - Colitis ischaemic [Unknown]
  - Inflammatory bowel disease [Unknown]
  - Irritable bowel syndrome [Unknown]
  - Injury [Unknown]
  - Depression [Unknown]
  - Intestinal obstruction [Unknown]
  - Blood cholesterol increased [Unknown]
  - Acne [Recovering/Resolving]
  - Dry skin [Unknown]
  - Hypersensitivity [Unknown]
